FAERS Safety Report 21226755 (Version 2)
Quarter: 2022Q4

REPORT INFORMATION
  Report Type: Spontaneous
  Country: US (occurrence: US)
  Receive Date: 20220818
  Receipt Date: 20221021
  Transmission Date: 20230112
  Serious: Yes (Other)
  Sender: FDA-Public Use
  Company Number: US-BRISTOL-MYERS SQUIBB COMPANY-163-20785-11021601

PATIENT
  Age: 26 Year
  Sex: Female

DRUGS (5)
  1. THALOMID [Suspect]
     Active Substance: THALIDOMIDE
     Indication: Product used for unknown indication
     Dosage: DRUG TAKEN BY MALE PATIENT ORALLY?FREQUENCY: 8 IN 1 DAY
     Route: 050
     Dates: start: 20090904
  2. THALOMID [Suspect]
     Active Substance: THALIDOMIDE
     Dosage: FREQUENCY TEXT: DAILY?200-400MG?DRUG TAKEN BY MALE PATIENT ORALLY
     Route: 050
     Dates: start: 201006
  3. THALOMID [Suspect]
     Active Substance: THALIDOMIDE
     Dosage: DRUG TAKEN BY MALE PATIENT ORALLY
     Route: 050
     Dates: start: 201010
  4. VITAMINS [Concomitant]
     Active Substance: VITAMINS
     Indication: Pregnancy
     Route: 065
     Dates: start: 20110111
  5. AFLURIA NOS [Concomitant]
     Active Substance: INFLUENZA VIRUS VACCINE TRIVALENT TYPE A+B AFLURIA
     Indication: Influenza immunisation
     Route: 065
     Dates: start: 20110101, end: 20110101

REACTIONS (6)
  - Exposure via body fluid [Unknown]
  - Unintended pregnancy [Unknown]
  - Gestational diabetes [Unknown]
  - Anaemia [Unknown]
  - Normal newborn [Unknown]
  - Vulvovaginal mycotic infection [Unknown]

NARRATIVE: CASE EVENT DATE: 20110720
